FAERS Safety Report 13526183 (Version 5)
Quarter: 2024Q1

REPORT INFORMATION
  Report Type: Spontaneous
  Country: HR (occurrence: None)
  Receive Date: 20170509
  Receipt Date: 20240312
  Transmission Date: 20240409
  Serious: Yes (Hospitalization, Other)
  Sender: FDA-Public Use
  Company Number: HR-ORION CORPORATION ORION PHARMA-ENT 2017-0076

PATIENT
  Age: 76 Year
  Sex: Male

DRUGS (12)
  1. ENTACAPONE [Suspect]
     Active Substance: ENTACAPONE
     Indication: Parkinson^s disease
  2. ROPINIROLE [Suspect]
     Active Substance: ROPINIROLE
     Indication: Parkinsonism
  3. ROPINIROLE [Suspect]
     Active Substance: ROPINIROLE
     Dosage: PRIOR DOSE
  4. ROPINIROLE [Suspect]
     Active Substance: ROPINIROLE
     Dosage: ON SECOND DAY OF HOSPITALISATION
  5. ASPIRIN [Suspect]
     Active Substance: ASPIRIN
     Indication: Product used for unknown indication
  6. PERINDOPRIL [Suspect]
     Active Substance: PERINDOPRIL
     Indication: Product used for unknown indication
  7. AMLODIPINE [Suspect]
     Active Substance: AMLODIPINE BESYLATE
     Indication: Product used for unknown indication
  8. GLIMEPIRIDE [Suspect]
     Active Substance: GLIMEPIRIDE
     Indication: Product used for unknown indication
  9. DICLOFENAC [Suspect]
     Active Substance: DICLOFENAC
     Indication: Back pain
  10. DICLOFENAC [Suspect]
     Active Substance: DICLOFENAC
     Dosage: ON FIFTH DAY OF HOSPITALISATION
  11. SIMVASTATIN [Suspect]
     Active Substance: SIMVASTATIN
     Indication: Product used for unknown indication
  12. CARBIDOPA\LEVODOPA [Concomitant]
     Active Substance: CARBIDOPA\LEVODOPA
     Indication: Parkinson^s disease

REACTIONS (3)
  - Pancreatitis acute [Recovered/Resolved]
  - Extrapyramidal disorder [Unknown]
  - Abdominal pain upper [Recovered/Resolved]

NARRATIVE: CASE EVENT DATE: 20110601
